FAERS Safety Report 16116447 (Version 1)
Quarter: 2019Q1

REPORT INFORMATION
  Report Type: Spontaneous
  Country: FR (occurrence: FR)
  Receive Date: 20190326
  Receipt Date: 20190326
  Transmission Date: 20190418
  Serious: Yes (Hospitalization)
  Sender: FDA-Public Use
  Company Number: FR-TEVA-2019-FR-1029176

PATIENT
  Age: 68 Year
  Sex: Female

DRUGS (14)
  1. ERBITUX [Suspect]
     Active Substance: CETUXIMAB
     Indication: RECTAL ADENOCARCINOMA
     Route: 042
     Dates: start: 20190117
  2. SERESTA 10 MG, COMPRIM? [Concomitant]
     Active Substance: OXAZEPAM
  3. FLUOROURACILE [Suspect]
     Active Substance: FLUOROURACIL
     Indication: RECTAL ADENOCARCINOMA
     Route: 042
     Dates: start: 20190117
  4. NORSET [Concomitant]
     Active Substance: MIRTAZAPINE
  5. SERESTA 50 MG, COMPRIM? S?CABLE [Concomitant]
     Active Substance: OXAZEPAM
  6. GEL LARMES, GEL OPHTALMIQUE EN R?CIPIENT UNIDOSE [Concomitant]
  7. PRIMPERAN [Concomitant]
     Active Substance: METOCLOPRAMIDE HYDROCHLORIDE
  8. ATARAX [Concomitant]
     Active Substance: HYDROXYZINE HYDROCHLORIDE
  9. IMODIUM [Concomitant]
     Active Substance: LOPERAMIDE HYDROCHLORIDE
  10. ACIDE FOLINIQUE [Suspect]
     Active Substance: LEUCOVORIN
     Indication: RECTAL ADENOCARCINOMA
     Route: 042
     Dates: start: 20190117
  11. LEVOTHYROX 100 MICROGRAMMES, COMPRIM? S?CABLE [Concomitant]
     Active Substance: LEVOTHYROXINE SODIUM
  12. ACUPAN [Concomitant]
     Active Substance: NEFOPAM HYDROCHLORIDE
  13. SPECIAFOLDINE 5 MG, COMPRIM? [Concomitant]
     Active Substance: FOLIC ACID
  14. INEXIUM [Concomitant]
     Active Substance: ESOMEPRAZOLE

REACTIONS (4)
  - Weight decreased [Not Recovered/Not Resolved]
  - Mucosal inflammation [Recovering/Resolving]
  - Diarrhoea [Not Recovered/Not Resolved]
  - Palmar-plantar erythrodysaesthesia syndrome [Not Recovered/Not Resolved]

NARRATIVE: CASE EVENT DATE: 20190117
